FAERS Safety Report 13030188 (Version 1)
Quarter: 2016Q4

REPORT INFORMATION
  Report Type: Report from Study
  Country: US (occurrence: US)
  Receive Date: 20161215
  Receipt Date: 20161215
  Transmission Date: 20170207
  Serious: Yes (Other)
  Sender: FDA-Public Use
  Company Number: US-ALEXION PHARMACEUTICALS INC.-A201609745

PATIENT
  Sex: Female

DRUGS (1)
  1. SOLIRIS [Suspect]
     Active Substance: ECULIZUMAB
     Indication: HAEMOLYTIC URAEMIC SYNDROME
     Dosage: UNK
     Route: 042

REACTIONS (15)
  - Blood chloride decreased [Unknown]
  - Blood creatinine increased [Unknown]
  - Blood lactate dehydrogenase abnormal [Unknown]
  - International normalised ratio increased [Unknown]
  - Haematocrit decreased [Unknown]
  - Glomerular filtration rate decreased [Unknown]
  - Blood phosphorus increased [Unknown]
  - Red blood cell count decreased [Unknown]
  - Prothrombin time prolonged [Unknown]
  - Anion gap increased [Unknown]
  - Activated partial thromboplastin time prolonged [Unknown]
  - Haemoglobin decreased [Unknown]
  - Hepatitis B surface antigen positive [Unknown]
  - Blood urea increased [Unknown]
  - Total complement activity increased [Unknown]

NARRATIVE: CASE EVENT DATE: 20161020
